FAERS Safety Report 16423551 (Version 1)
Quarter: 2019Q2

REPORT INFORMATION
  Report Type: Report from Study
  Country: None (occurrence: US)
  Receive Date: 20190613
  Receipt Date: 20190613
  Transmission Date: 20190711
  Serious: Yes (Hospitalization, Other)
  Sender: FDA-Public Use
  Company Number: US-ABBVIE-19K-163-2810681-00

PATIENT
  Sex: Female

DRUGS (1)
  1. HUMIRA [Suspect]
     Active Substance: ADALIMUMAB
     Indication: UVEITIS
     Route: 058

REACTIONS (10)
  - Electrocardiogram abnormal [Unknown]
  - Glaucoma [Unknown]
  - Fall [Unknown]
  - Blood sodium decreased [Unknown]
  - Hand fracture [Unknown]
  - Musculoskeletal discomfort [Unknown]
  - Medical device implantation [Not Recovered/Not Resolved]
  - Spinal fusion surgery [Not Recovered/Not Resolved]
  - Joint swelling [Unknown]
  - Visual impairment [Unknown]
